FAERS Safety Report 8557550-6 (Version None)
Quarter: 2012Q3

REPORT INFORMATION
  Report Type: 
  Country: None (occurrence: None)
  Receive Date: 20120801
  Receipt Date: 20120723
  Transmission Date: 20120928
  Serious: Yes (Other)
  Sender: FDA-Public Use
  Company Number: HR-ABBOTT-12P-216-0959888-00

PATIENT
  Age: 85 Year
  Sex: Female
  Weight: 63 kg

DRUGS (9)
  1. REQUIP [Interacting]
     Indication: PARKINSON'S DISEASE
     Route: 048
  2. ZALDIAR [Interacting]
     Indication: PAIN
     Dosage: 325 MG/ 37.5 MG, PRN
     Route: 048
  3. AKINETON [Suspect]
     Indication: PARKINSON'S DISEASE
     Route: 048
  4. MADOPAR [Interacting]
     Indication: PARKINSON'S DISEASE
     Dosage: 100 MG LEVODOPA + 25 MG BENSERAZZIDE
     Route: 048
  5. KORDOBIS [Interacting]
     Indication: HYPERTENSION
     Route: 048
     Dates: start: 20120524, end: 20120525
  6. FUROSEMIDE [Concomitant]
     Indication: CARDIAC FAILURE
     Route: 048
     Dates: start: 20120524
  7. VENTOLIN [Concomitant]
     Indication: PRODUCT USED FOR UNKNOWN INDICATION
     Dosage: 100 MCG SALBUTAMOL
     Route: 055
  8. NITROGLYCERIN [Concomitant]
     Indication: PRODUCT USED FOR UNKNOWN INDICATION
     Route: 060
  9. NITRAZEPAM [Interacting]
     Indication: PRODUCT USED FOR UNKNOWN INDICATION
     Route: 048

REACTIONS (3)
  - HALLUCINATION, AUDITORY [None]
  - INSOMNIA [None]
  - DRUG INTERACTION [None]
